FAERS Safety Report 4561150-2 (Version None)
Quarter: 2005Q1

REPORT INFORMATION
  Report Type: 
  Country: None (occurrence: None)
  Receive Date: 20050121
  Receipt Date: 20040730
  Transmission Date: 20050727
  Serious: Yes (Hospitalization)
  Sender: FDA-Public Use
  Company Number: B01200401441

PATIENT
  Age: 62 Year
  Sex: Male
  Weight: 96.3 kg

DRUGS (6)
  1. CLOPIDOGREL -  TABLET - 75 MG [Suspect]
     Indication: ISCHAEMIA
     Dosage: 75 MG QD - ORAL
     Route: 048
     Dates: start: 20021212, end: 20040111
  2. CLOPIDOGREL -  TABLET - 75 MG [Suspect]
     Indication: PROPHYLAXIS
     Dosage: 75 MG QD - ORAL
     Route: 048
     Dates: start: 20021212, end: 20040111
  3. ACETYLSALICYLIC ACID SRT [Concomitant]
  4. PANTOPRAZOLE SODIUM [Concomitant]
  5. ALLOPURINOL [Concomitant]
  6. TAMSULOSIN HYDROCHLORIDE [Concomitant]

REACTIONS (7)
  - BARRETT'S OESOPHAGUS [None]
  - COLONIC POLYP [None]
  - CONDITION AGGRAVATED [None]
  - DIVERTICULUM [None]
  - EROSIVE OESOPHAGITIS [None]
  - GASTROINTESTINAL EROSION [None]
  - HAEMATOCHEZIA [None]
